FAERS Safety Report 4290623-5 (Version None)
Quarter: 2004Q1

REPORT INFORMATION
  Report Type: 
  Country: None (occurrence: None)
  Receive Date: 20040209
  Receipt Date: 20040128
  Transmission Date: 20041129
  Serious: Yes (Life-Threatening, Hospitalization)
  Sender: FDA-Public Use
  Company Number: A-CH2004-04191

PATIENT
  Age: 58 Year
  Sex: Female

DRUGS (10)
  1. TRACLEER [Suspect]
     Indication: PULMONARY HYPERTENSION
     Dosage: SEE IMAGE
     Route: 048
     Dates: start: 20030922, end: 20031015
  2. TRACLEER [Suspect]
     Indication: PULMONARY HYPERTENSION
     Dosage: SEE IMAGE
     Route: 048
     Dates: start: 20031016, end: 20040105
  3. TRACLEER [Suspect]
     Indication: PULMONARY HYPERTENSION
     Dosage: SEE IMAGE
     Route: 048
     Dates: start: 20040106, end: 20040109
  4. TRACLEER [Suspect]
     Indication: PULMONARY HYPERTENSION
     Dosage: SEE IMAGE
     Route: 048
     Dates: start: 20040110
  5. OXYGEN (OXYGEN) [Concomitant]
  6. LASIX [Concomitant]
  7. ALDACTONE [Concomitant]
  8. DILRENE (DILTIAZEM HYDROCHLORIDE) [Concomitant]
  9. PREVISCAN (FLUINDIONE) [Concomitant]
  10. ZOLPIDEM TARTRATE [Concomitant]

REACTIONS (6)
  - CARDIAC FAILURE [None]
  - DRY MOUTH [None]
  - DYSPNOEA EXACERBATED [None]
  - ECHOCARDIOGRAM ABNORMAL [None]
  - NIGHTMARE [None]
  - RESPIRATORY FAILURE [None]
